FAERS Safety Report 6625442-5 (Version None)
Quarter: 2010Q1

REPORT INFORMATION
  Report Type: 
  Country: None (occurrence: None)
  Receive Date: 20100310
  Receipt Date: 20090827
  Transmission Date: 20100710
  Serious: Yes (Hospitalization)
  Sender: FDA-Public Use
  Company Number: US-BIOGENIDEC-2009BI027284

PATIENT
  Sex: Female

DRUGS (1)
  1. AVONEX [Suspect]
     Indication: DRUG USE FOR UNKNOWN INDICATION
     Route: 030

REACTIONS (6)
  - CYSTITIS [None]
  - DYSARTHRIA [None]
  - HOT FLUSH [None]
  - MENOPAUSE [None]
  - MENSTRUATION IRREGULAR [None]
  - PYREXIA [None]
